FAERS Safety Report 6805846-8 (Version None)
Quarter: 2010Q2

REPORT INFORMATION
  Report Type: 
  Country: None (occurrence: None)
  Receive Date: 20100629
  Receipt Date: 20071108
  Transmission Date: 20101027
  Serious: No
  Sender: FDA-Public Use
  Company Number: US-PFIZER INC-2007091063

PATIENT
  Sex: Female
  Weight: 79.4 kg

DRUGS (12)
  1. XANAX [Suspect]
     Indication: ANXIETY
  2. XANAX [Interacting]
     Indication: PANIC ATTACK
  3. NEURONTIN [Interacting]
  4. CHANTIX [Interacting]
     Indication: SMOKING CESSATION THERAPY
     Dates: start: 20071022
  5. TRAZODONE HYDROCHLORIDE [Interacting]
  6. CYMBALTA [Interacting]
  7. MONTELUKAST SODIUM [Interacting]
  8. BUSPAR [Concomitant]
  9. LAMICTAL [Concomitant]
  10. SYNTHROID [Concomitant]
  11. NASONEX [Concomitant]
  12. DECONGESTANT [Concomitant]

REACTIONS (6)
  - ANXIETY [None]
  - BACK DISORDER [None]
  - BACK PAIN [None]
  - DRUG INTERACTION [None]
  - MEMORY IMPAIRMENT [None]
  - PANIC ATTACK [None]
